FAERS Safety Report 20160219 (Version 2)
Quarter: 2021Q4

REPORT INFORMATION
  Report Type: Report from Study
  Country: AR (occurrence: AR)
  Receive Date: 20211208
  Receipt Date: 20211223
  Transmission Date: 20220304
  Serious: Yes (Other)
  Sender: FDA-Public Use
  Company Number: AR-NOVARTISPH-NVSC2021AR278701

PATIENT
  Age: 56 Year
  Sex: Female

DRUGS (4)
  1. DIOVAN [Suspect]
     Active Substance: VALSARTAN
     Indication: Hypertension
     Dosage: 2 DOSAGE FORM, QD (APPROXIMATELY SINCE 00-00-2011)
     Route: 065
  2. DIOVAN [Suspect]
     Active Substance: VALSARTAN
     Dosage: 1 DOSAGE FORM, QD (1 OF 160) (DAILY AT FASTING)
     Route: 065
     Dates: start: 2011
  3. CARVEDIL D [Concomitant]
     Indication: Hypertension
     Dosage: 0.5 DOSAGE FORM, QD (AT NOON)
     Route: 065
     Dates: start: 202109
  4. LEVOTHYROXINE [Concomitant]
     Active Substance: LEVOTHYROXINE
     Indication: Product used for unknown indication
     Dosage: 0.25 MG, QD (DAILY AT FASTING, STARTED MORE THAN 10 YEARS AGO)
     Route: 065

REACTIONS (2)
  - Diabetes mellitus [Unknown]
  - Incorrect dose administered [Unknown]

NARRATIVE: CASE EVENT DATE: 20201101
